FAERS Safety Report 6758828-9 (Version None)
Quarter: 2010Q2

REPORT INFORMATION
  Report Type: 
  Country: None (occurrence: None)
  Receive Date: 20100603
  Receipt Date: 20100519
  Transmission Date: 20101027
  Serious: Yes (Death)
  Sender: FDA-Public Use
  Company Number: 2010002018

PATIENT
  Age: 60 Year
  Sex: Female

DRUGS (7)
  1. ERLOTINIB HYDROCHLORIDE [Suspect]
     Indication: PANCREATIC CARCINOMA
     Dosage: (150 MG), ORAL
     Route: 048
  2. SENOKOT [Concomitant]
  3. DOCUSATE SODIUM (DOCUSATE SODIUM) [Concomitant]
  4. MILK OF MAGNESIA TAB [Concomitant]
  5. ASPIRIN [Concomitant]
  6. LACTULOSE [Concomitant]
  7. NYSTATIN [Concomitant]

REACTIONS (1)
  - DEATH [None]
